FAERS Safety Report 10070430 (Version 1)
Quarter: 2014Q2

REPORT INFORMATION
  Report Type: Spontaneous
  Country: US (occurrence: US)
  Receive Date: 20140410
  Receipt Date: 20140410
  Transmission Date: 20141212
  Serious: No
  Sender: FDA-Public Use
  Company Number: US-009507513-1404USA005104

PATIENT
  Age: 60 Year
  Sex: Male

DRUGS (6)
  1. REBETOL [Suspect]
     Indication: HEPATITIS C
     Dosage: 150 MG/0.5 ML , QW
     Dates: start: 20140328
  2. PEGINTRON [Suspect]
     Dosage: 3 DF, BID
     Route: 048
     Dates: start: 20140328
  3. NOVOLOG [Concomitant]
     Dosage: ONCE DAILY 15 UNITS
  4. SOVALDI [Concomitant]
     Dosage: UNK, QD
  5. METFORMIN [Concomitant]
     Dosage: 1000 MG, BID
  6. GLYBURIDE [Concomitant]
     Dosage: 1 DF, BID

REACTIONS (2)
  - Hyperchlorhydria [Recovered/Resolved]
  - Aphagia [Recovered/Resolved]
